FAERS Safety Report 8437100-5 (Version None)
Quarter: 2012Q2

REPORT INFORMATION
  Report Type: 
  Country: None (occurrence: None)
  Receive Date: 20120614
  Receipt Date: 20120602
  Transmission Date: 20120825
  Serious: Yes (Hospitalization)
  Sender: FDA-Public Use
  Company Number: US-PFIZER INC-2012132934

PATIENT
  Age: 14 Year
  Sex: Male
  Weight: 73 kg

DRUGS (1)
  1. SUNITINIB MALATE [Suspect]
     Indication: OLIGODENDROGLIOMA
     Dosage: 15 MG/M2, 1X/DAY, DAYS 1-28 CYCLE=6 WEEKS (MAX=18 CYCLES)
     Route: 048
     Dates: start: 20120411, end: 20120506

REACTIONS (1)
  - RASH MACULO-PAPULAR [None]
